FAERS Safety Report 6243253-X (Version None)
Quarter: 2009Q2

REPORT INFORMATION
  Report Type: 
  Country: None (occurrence: None)
  Receive Date: 20090622
  Receipt Date: 20090622
  Transmission Date: 20091009
  Serious: Yes (Other)
  Sender: FDA-Public Use
  Company Number: None

PATIENT
  Sex: Male
  Weight: 73 kg

DRUGS (7)
  1. PANTOPRAZOLE SODIUM [Suspect]
     Indication: GASTROOESOPHAGEAL REFLUX DISEASE
     Dosage: 40MG TWICE DAILY PO
     Route: 048
     Dates: start: 20090414, end: 20090610
  2. VORICONAZOLE [Concomitant]
  3. CASPOFUNGIN [Concomitant]
  4. MS CONTIN [Concomitant]
  5. INTERFERON-GAMMA [Concomitant]
  6. DOCUSATE [Concomitant]
  7. SENNA [Concomitant]

REACTIONS (1)
  - BLOOD CREATINE PHOSPHOKINASE INCREASED [None]
